FAERS Safety Report 9750193 (Version 1)
Quarter: 2013Q4

REPORT INFORMATION
  Report Type: Spontaneous
  Country: US (occurrence: US)
  Receive Date: 20131212
  Receipt Date: 20131212
  Transmission Date: 20140711
  Serious: Yes (Hospitalization)
  Sender: FDA-Public Use
  Company Number: US-GLAXOSMITHKLINE-A1052679A

PATIENT
  Age: 51 Year
  Sex: Female

DRUGS (17)
  1. FLOVENT [Suspect]
     Indication: CHRONIC OBSTRUCTIVE PULMONARY DISEASE
     Dosage: 2PUFF TWICE PER DAY
     Route: 055
  2. ADVAIR [Suspect]
     Indication: PRODUCT USED FOR UNKNOWN INDICATION
     Route: 065
  3. VENTOLIN HFA [Suspect]
     Indication: PRODUCT USED FOR UNKNOWN INDICATION
     Route: 065
  4. PLAVIX [Concomitant]
  5. BABY ASPIRIN [Concomitant]
  6. METOPROLOL [Concomitant]
  7. OXYCODONE [Concomitant]
  8. MELOXICAM [Concomitant]
  9. ZYRTEC [Concomitant]
  10. MUCINEX [Concomitant]
  11. BENADRYL [Concomitant]
  12. BUSPAR [Concomitant]
  13. UNSPECIFIED INGREDIENT [Concomitant]
  14. NASONEX [Concomitant]
  15. PROTONIX [Concomitant]
  16. COMBIVENT [Concomitant]
  17. SYMBICORT [Concomitant]

REACTIONS (3)
  - Pneumonia [Unknown]
  - Drug ineffective [Unknown]
  - Chronic obstructive pulmonary disease [Unknown]
